FAERS Safety Report 4472783-6 (Version None)
Quarter: 2004Q4

REPORT INFORMATION
  Report Type: 
  Country: None (occurrence: None)
  Receive Date: 20041012
  Receipt Date: 20041012
  Transmission Date: 20050328
  Serious: Yes (Other)
  Sender: FDA-Public Use
  Company Number: None

PATIENT
  Age: 50 Year
  Sex: Male
  Weight: 113.3993 kg

DRUGS (1)
  1. RATIO-SERTRALINE  50MG  ZEHRS DRUG STORES [Suspect]
     Indication: DEPRESSION
     Dosage: 3 CAPSULES DAILY
     Dates: start: 20010101, end: 20041001

REACTIONS (5)
  - BACK PAIN [None]
  - COORDINATION ABNORMAL [None]
  - DRUG WITHDRAWAL SYNDROME [None]
  - INFLUENZA LIKE ILLNESS [None]
  - MEMORY IMPAIRMENT [None]
